FAERS Safety Report 16535731 (Version 1)
Quarter: 2019Q3

REPORT INFORMATION
  Report Type: Spontaneous
  Country: US (occurrence: US)
  Receive Date: 20190705
  Receipt Date: 20190705
  Transmission Date: 20191004
  Serious: Yes (Other)
  Sender: FDA-Public Use
  Company Number: US-ROCHE-2349680

PATIENT
  Age: 43 Year
  Sex: Female
  Weight: 56.75 kg

DRUGS (4)
  1. PAXIL [Concomitant]
     Active Substance: PAROXETINE HYDROCHLORIDE
  2. KLONOPIN [Suspect]
     Active Substance: CLONAZEPAM
     Indication: ANXIETY
     Dosage: ONGOING: NO
     Route: 048
     Dates: start: 1994, end: 2015
  3. KLONOPIN [Suspect]
     Active Substance: CLONAZEPAM
     Dosage: 2 MG TABLET ONCE A DAY ;ONGOING: YES
     Route: 048
     Dates: start: 20150101
  4. TRINTELLIX [Concomitant]
     Active Substance: VORTIOXETINE HYDROBROMIDE

REACTIONS (7)
  - Asthenopia [Recovered/Resolved]
  - Panic attack [Recovered/Resolved]
  - Fatigue [Recovered/Resolved]
  - Abdominal distension [Recovered/Resolved]
  - Hypothyroidism [Unknown]
  - Eye irritation [Recovered/Resolved]
  - Constipation [Recovered/Resolved]

NARRATIVE: CASE EVENT DATE: 20190625
